FAERS Safety Report 5637943-7 (Version None)
Quarter: 2008Q1

REPORT INFORMATION
  Report Type: 
  Country: None (occurrence: None)
  Receive Date: 20080226
  Receipt Date: 20080220
  Transmission Date: 20080703
  Serious: Yes (Death)
  Sender: FDA-Public Use
  Company Number: SE-JNJFOC-20080205624

PATIENT
  Age: 71 Year
  Sex: Male

DRUGS (6)
  1. REOPRO [Suspect]
     Dosage: 12 HOUR INFUSION
     Route: 042
  2. REOPRO [Suspect]
     Indication: PERCUTANEOUS CORONARY INTERVENTION
     Dosage: BOLUS
     Route: 042
  3. TENECTEPLASE [Concomitant]
  4. ACETYLSALICYLIC ACID SRT [Concomitant]
  5. CLOPIDOGREL BISULFATE [Concomitant]
  6. HEPARIN SULFATE [Concomitant]

REACTIONS (1)
  - HAEMORRHAGE INTRACRANIAL [None]
